FAERS Safety Report 5987248-X (Version None)
Quarter: 2008Q4

REPORT INFORMATION
  Report Type: 
  Country: None (occurrence: None)
  Receive Date: 20081209
  Receipt Date: 20081127
  Transmission Date: 20090506
  Serious: Yes (Hospitalization)
  Sender: FDA-Public Use
  Company Number: JP-MERCK-0811USA02228

PATIENT
  Age: 64 Year
  Sex: Male

DRUGS (8)
  1. PEPCID RPD [Suspect]
     Route: 048
     Dates: start: 20081110, end: 20081113
  2. CORTRIL [Concomitant]
     Indication: ADRENAL DISORDER
     Route: 048
     Dates: start: 20081118
  3. CORTRIL [Concomitant]
     Route: 048
     Dates: start: 20081113, end: 20081117
  4. CORTRIL [Concomitant]
     Route: 048
     Dates: start: 20081111, end: 20081112
  5. BIO THREE [Suspect]
     Route: 048
     Dates: start: 20081111, end: 20081113
  6. TAGAMET [Concomitant]
     Route: 042
     Dates: start: 20081107, end: 20081110
  7. VITAMEDIN [Concomitant]
     Route: 042
     Dates: start: 20081106, end: 20081110
  8. VITAMEDIN [Concomitant]
     Route: 042
     Dates: start: 20081106, end: 20081110

REACTIONS (1)
  - RHABDOMYOLYSIS [None]
